FAERS Safety Report 5359940-1 (Version None)
Quarter: 2007Q2

REPORT INFORMATION
  Report Type: 
  Country: None (occurrence: None)
  Receive Date: 20070530
  Receipt Date: 20070202
  Transmission Date: 20071010
  Serious: No
  Sender: FDA-Public Use
  Company Number: 2007PV029455

PATIENT
  Age: 50 Year
  Sex: Female

DRUGS (10)
  1. BYETTA [Suspect]
     Indication: DRUG USE FOR UNKNOWN INDICATION
     Dosage: SC
     Route: 058
     Dates: start: 20070104
  2. ENALAPRIL MALEATE [Concomitant]
  3. GLUCOPHAGE [Concomitant]
  4. TOPROL-XL [Concomitant]
  5. DIGOXIN [Concomitant]
  6. PLAVIX [Concomitant]
  7. GLYBURIDE [Concomitant]
  8. ACTOS [Concomitant]
  9. BUMEX [Concomitant]
  10. TRICOR [Concomitant]

REACTIONS (2)
  - BLOOD CREATININE INCREASED [None]
  - BLOOD UREA INCREASED [None]
